FAERS Safety Report 9497169 (Version 1)
Quarter: 2013Q3

REPORT INFORMATION
  Report Type: Spontaneous
  Country: US (occurrence: None)
  Receive Date: 20130903
  Receipt Date: 20130903
  Transmission Date: 20140515
  Serious: No
  Sender: FDA-Public Use
  Company Number: None

PATIENT
  Age: 69 Year
  Sex: Male
  Weight: 92.99 kg

DRUGS (1)
  1. ATORVASTATIN [Suspect]
     Indication: BLOOD CHOLESTEROL ABNORMAL
     Route: 048
     Dates: start: 20130708, end: 20130831

REACTIONS (6)
  - Myalgia [None]
  - Back pain [None]
  - Constipation [None]
  - Change of bowel habit [None]
  - Abnormal faeces [None]
  - Muscle spasms [None]
